FAERS Safety Report 25061598 (Version 1)
Quarter: 2025Q1

REPORT INFORMATION
  Report Type: Spontaneous
  Country: US (occurrence: US)
  Receive Date: 20250311
  Receipt Date: 20250311
  Transmission Date: 20250408
  Serious: No
  Sender: CHIESI
  Company Number: US-CHIESI-2024CHF07553

PATIENT
  Age: 12 Year
  Sex: Male

DRUGS (2)
  1. LAMZEDE [Suspect]
     Active Substance: VELMANASE ALFA-TYCV
     Indication: Product used for unknown indication
     Route: 042
     Dates: start: 20241101
  2. DIPHENHYDRAMINE [Concomitant]
     Active Substance: DIPHENHYDRAMINE
     Indication: Premedication

REACTIONS (2)
  - Symptom recurrence [Unknown]
  - Ataxia [Unknown]

NARRATIVE: CASE EVENT DATE: 20241115
